FAERS Safety Report 5319151-2 (Version None)
Quarter: 2007Q1

REPORT INFORMATION
  Report Type: 
  Country: None (occurrence: None)
  Receive Date: 20070208
  Receipt Date: 20060713
  Transmission Date: 20070707
  Serious: Yes (Other)
  Sender: FDA-Public Use
  Company Number: 20060713VANCO0196

PATIENT
  Age: 30 Year
  Sex: Female
  Weight: 39 kg

DRUGS (15)
  1. VANCOMYCIN HCL [Suspect]
     Indication: GASTROENTERITIS STAPHYLOCOCCAL
     Dosage: 2 GMS DAILY (0.5 GM,4 IN 1 D),ORAL
     Route: 048
     Dates: start: 20060525, end: 20060710
  2. VANCOCIN HYDROCHLORIDE [Suspect]
     Indication: PNEUMONIA STAPHYLOCOCCAL
     Dosage: SEE IMAGE
     Route: 042
     Dates: start: 20060502, end: 20060504
  3. VANCOCIN HYDROCHLORIDE [Suspect]
     Indication: PNEUMONIA STAPHYLOCOCCAL
     Dosage: SEE IMAGE
     Route: 042
     Dates: start: 20060514, end: 20060517
  4. VANCOCIN HYDROCHLORIDE [Suspect]
     Indication: PNEUMONIA STAPHYLOCOCCAL
     Dosage: SEE IMAGE
     Route: 042
     Dates: start: 20060519, end: 20060602
  5. MERCAZOLE (THIAMAZOLE) [Concomitant]
  6. TIENAM (PRIMAXIN /00820501/) [Concomitant]
  7. FAMOTIDINE [Concomitant]
  8. LASIX [Concomitant]
  9. PLASMA [Concomitant]
  10. PLATELETS [Concomitant]
  11. RED BLOOD CELLS [Concomitant]
  12. ALBUMIN (HUMAN) [Concomitant]
  13. PROPRANOLOL HYDROCHLORIDE [Concomitant]
  14. SPIRONOLACTONE [Concomitant]
  15. CIPROFLOXACIN [Concomitant]

REACTIONS (2)
  - HAEMOGLOBIN DECREASED [None]
  - PLATELET COUNT DECREASED [None]
